FAERS Safety Report 12810280 (Version 1)
Quarter: 2016Q4

REPORT INFORMATION
  Report Type: Spontaneous
  Country: IN (occurrence: IN)
  Receive Date: 20161005
  Receipt Date: 20161005
  Transmission Date: 20170207
  Serious: Yes (Other)
  Sender: FDA-Public Use
  Company Number: IN-SUN PHARMACEUTICAL INDUSTRIES LTD-2016R1-125386

PATIENT
  Age: 40 Year
  Sex: Female

DRUGS (4)
  1. ROPIVACAINE [Suspect]
     Active Substance: ROPIVACAINE
     Indication: PRODUCT USED FOR UNKNOWN INDICATION
     Dosage: 12 ML, OVER 6 MINUTES
     Route: 065
  2. LIGNOCAINE [Suspect]
     Active Substance: LIDOCAINE HYDROCHLORIDE
     Indication: PRODUCT USED FOR UNKNOWN INDICATION
     Dosage: 3 ML, TEST DOSE
     Route: 065
  3. MIDAZOLAM [Suspect]
     Active Substance: MIDAZOLAM\MIDAZOLAM HYDROCHLORIDE
     Indication: SEDATION
     Dosage: UNK
     Route: 042
  4. ADRENALINE [Suspect]
     Active Substance: EPINEPHRINE
     Indication: PRODUCT USED FOR UNKNOWN INDICATION
     Dosage: 1:200,000 (TEST DOSE)
     Route: 065

REACTIONS (4)
  - Hypotension [Recovered/Resolved]
  - Hypoaesthesia [Recovered/Resolved]
  - Anaesthetic complication [Recovered/Resolved]
  - Muscular weakness [Recovered/Resolved]
